FAERS Safety Report 14919514 (Version 4)
Quarter: 2025Q2

REPORT INFORMATION
  Report Type: Report from Study
  Country: CA (occurrence: CA)
  Receive Date: 20180521
  Receipt Date: 20250505
  Transmission Date: 20250716
  Serious: Yes (Hospitalization, Other)
  Sender: TAKEDA
  Company Number: CA-TAKEDA-2018TUS017350

PATIENT
  Age: 24 Year
  Sex: Female
  Weight: 81.1 kg

DRUGS (4)
  1. VEDOLIZUMAB [Suspect]
     Active Substance: VEDOLIZUMAB
     Indication: Colitis ulcerative
  2. VEDOLIZUMAB [Suspect]
     Active Substance: VEDOLIZUMAB
     Dosage: 300 MILLIGRAM, Q4WEEKS
     Dates: start: 20180605
  3. PREDNISONE [Concomitant]
     Active Substance: PREDNISONE
  4. RISANKIZUMAB [Concomitant]
     Active Substance: RISANKIZUMAB

REACTIONS (2)
  - Crohn^s disease [Unknown]
  - Treatment failure [Unknown]

NARRATIVE: CASE EVENT DATE: 20180501
